FAERS Safety Report 8236325-1 (Version None)
Quarter: 2012Q1

REPORT INFORMATION
  Report Type: 
  Country: None (occurrence: None)
  Receive Date: 20120327
  Receipt Date: 20120316
  Transmission Date: 20120608
  Serious: Yes (Hospitalization)
  Sender: FDA-Public Use
  Company Number: CA-JNJFOC-20110910412

PATIENT
  Sex: Female
  Weight: 69 kg

DRUGS (2)
  1. REMICADE [Suspect]
     Indication: CROHN'S DISEASE
     Route: 042
     Dates: start: 20110301
  2. REMICADE [Suspect]
     Dosage: AUG/SEP 2011
     Route: 042
     Dates: start: 20110101, end: 20110101

REACTIONS (1)
  - INTESTINAL STENOSIS [None]
